FAERS Safety Report 19901173 (Version 1)
Quarter: 2021Q3

REPORT INFORMATION
  Report Type: Spontaneous
  Country: US (occurrence: US)
  Receive Date: 20210930
  Receipt Date: 20210930
  Transmission Date: 20211014
  Serious: Yes (Other)
  Sender: FDA-Public Use
  Company Number: US-PFIZER INC-202101255782

PATIENT
  Age: 65 Year
  Sex: Male
  Weight: 129.3 kg

DRUGS (1)
  1. NITROSTAT [Suspect]
     Active Substance: NITROGLYCERIN
     Dosage: 0.4 MG
     Route: 060
     Dates: start: 20210303

REACTIONS (6)
  - Atrial fibrillation [Unknown]
  - Swelling [Unknown]
  - Dizziness [Unknown]
  - Chest pain [Unknown]
  - Palpitations [Unknown]
  - Tonsillar disorder [Unknown]

NARRATIVE: CASE EVENT DATE: 20210315
